FAERS Safety Report 18748416 (Version 1)
Quarter: 2021Q1

REPORT INFORMATION
  Report Type: Spontaneous
  Country: US (occurrence: US)
  Receive Date: 20210115
  Receipt Date: 20210115
  Transmission Date: 20210419
  Serious: No
  Sender: FDA-Public Use
  Company Number: US-TEVA-2021-US-1868394

PATIENT
  Sex: Male

DRUGS (1)
  1. PENECILLON (PHENOXYMETHYLPENICILLIN) [Suspect]
     Active Substance: PENICILLIN V
     Route: 065

REACTIONS (1)
  - Drug hypersensitivity [Unknown]
